FAERS Safety Report 5105034-X (Version None)
Quarter: 2006Q3

REPORT INFORMATION
  Report Type: 
  Country: None (occurrence: None)
  Receive Date: 20060911
  Receipt Date: 20060828
  Transmission Date: 20061208
  Serious: Yes (Hospitalization)
  Sender: FDA-Public Use
  Company Number: RENA-11899

PATIENT
  Age: 67 Year
  Sex: Male

DRUGS (1)
  1. RENAGEL [Suspect]
     Indication: HYPERPHOSPHATAEMIA
     Dosage: 2.4 G TID PO
     Route: 048
     Dates: start: 20030101

REACTIONS (4)
  - CORONARY ARTERY OCCLUSION [None]
  - ORAL INTAKE REDUCED [None]
  - PRURITUS [None]
  - RASH [None]
